FAERS Safety Report 20921966 (Version 1)
Quarter: 2022Q2

REPORT INFORMATION
  Report Type: Other
  Country: CN (occurrence: None)
  Receive Date: 20220607
  Receipt Date: 20220607
  Transmission Date: 20220721
  Serious: Yes (Death, Other)
  Sender: FDA-Public Use
  Company Number: CN-ROCHE-3108995

PATIENT
  Age: 62 Year
  Sex: Male

DRUGS (6)
  1. BEVACIZUMAB [Suspect]
     Active Substance: BEVACIZUMAB
     Indication: Non-small cell lung cancer
     Dosage: FOR 2 CYCLES
     Route: 065
  2. PACLITAXEL [Suspect]
     Active Substance: PACLITAXEL
     Indication: Non-small cell lung cancer
     Dosage: FOR 2 CYCLES
     Route: 065
  3. MEROPENEM [Concomitant]
     Active Substance: MEROPENEM
  4. GEMCITABINE [Concomitant]
     Active Substance: GEMCITABINE
     Dosage: ON DAYS 1 AND 8
  5. CARBOPLATIN [Concomitant]
     Active Substance: CARBOPLATIN
     Dosage: ON DAY 1
  6. CATEQUENTINIB [Concomitant]
     Active Substance: CATEQUENTINIB
     Route: 048

REACTIONS (4)
  - Respiratory failure [Fatal]
  - Bronchopleural fistula [Unknown]
  - Infection [Unknown]
  - Cardiac failure [Unknown]
